FAERS Safety Report 17040516 (Version 2)
Quarter: 2019Q4

REPORT INFORMATION
  Report Type: Report from Study
  Country: CN (occurrence: CN)
  Receive Date: 20191117
  Receipt Date: 20191223
  Transmission Date: 20200122
  Serious: Yes (Other)
  Sender: FDA-Public Use
  Company Number: CN-ROCHE-2271073

PATIENT
  Age: 57 Year
  Sex: Female
  Weight: 60 kg

DRUGS (1)
  1. AVASTIN [Suspect]
     Active Substance: BEVACIZUMAB
     Indication: COLON CANCER
     Route: 041
     Dates: start: 20160720, end: 20191001

REACTIONS (4)
  - Renal impairment [Unknown]
  - Intestinal obstruction [Unknown]
  - Asthenia [Unknown]
  - Hernia [Unknown]

NARRATIVE: CASE EVENT DATE: 20190221
